FAERS Safety Report 6686625-1 (Version None)
Quarter: 2010Q2

REPORT INFORMATION
  Report Type: 
  Country: None (occurrence: None)
  Receive Date: 20100419
  Receipt Date: 20100407
  Transmission Date: 20101027
  Serious: Yes (Hospitalization, Other)
  Sender: FDA-Public Use
  Company Number: FR-ELI_LILLY_AND_COMPANY-FR201001005491

PATIENT
  Sex: Female
  Weight: 79 kg

DRUGS (7)
  1. BYETTA [Suspect]
     Indication: TYPE 2 DIABETES MELLITUS
     Dosage: 5 UG, 2/D
     Route: 058
     Dates: start: 20090928, end: 20091101
  2. ZANIDIP [Concomitant]
     Dosage: 20 MG, DAILY (1/D)
     Route: 048
     Dates: start: 20080301
  3. TRIATEC [Concomitant]
     Dosage: 10 MG, DAILY (1/D)
     Route: 048
     Dates: start: 20060101
  4. FLUDEX [Concomitant]
     Dosage: 1.5 MG, DAILY (1/D)
     Route: 048
     Dates: start: 20060101
  5. LANTUS [Concomitant]
     Dosage: 8 U, DAILY (1/D)
     Route: 058
     Dates: start: 20031001
  6. ZOCOR [Concomitant]
     Dosage: 1 D/F, DAILY (1/D)
     Route: 048
  7. GLUCOPHAGE [Concomitant]
     Dosage: 1000 MG, DAILY (1/D)
     Route: 048

REACTIONS (12)
  - ANAEMIA [None]
  - CATARACT [None]
  - COLITIS ISCHAEMIC [None]
  - DIABETES MELLITUS INADEQUATE CONTROL [None]
  - GLYCOSYLATED HAEMOGLOBIN INCREASED [None]
  - HYPOGLYCAEMIA [None]
  - LUNG NEOPLASM [None]
  - LYMPHANGITIS [None]
  - NAUSEA [None]
  - OFF LABEL USE [None]
  - SYNCOPE [None]
  - WEIGHT DECREASED [None]
